FAERS Safety Report 7032313-1 (Version None)
Quarter: 2010Q4

REPORT INFORMATION
  Report Type: 
  Country: None (occurrence: None)
  Receive Date: 20101007
  Receipt Date: 20100607
  Transmission Date: 20110411
  Serious: Yes (Other)
  Sender: FDA-Public Use
  Company Number: DE-BRISTOL-MYERS SQUIBB COMPANY-15137714

PATIENT
  Age: 43 Year
  Sex: Female

DRUGS (2)
  1. CETUXIMAB [Suspect]
     Indication: COLORECTAL CANCER METASTATIC
     Dates: start: 20080201
  2. PANITUMUMAB [Suspect]
     Indication: COLORECTAL CANCER METASTATIC
     Dates: start: 20081001, end: 20090301

REACTIONS (6)
  - APHTHOUS STOMATITIS [None]
  - DERMATITIS ACNEIFORM [None]
  - HYPERTRICHOSIS [None]
  - PARONYCHIA [None]
  - SKIN FISSURES [None]
  - XANTHOMA [None]
